FAERS Safety Report 6939255-8 (Version None)
Quarter: 2010Q3

REPORT INFORMATION
  Report Type: 
  Country: None (occurrence: None)
  Receive Date: 20100824
  Receipt Date: 20100817
  Transmission Date: 20110219
  Serious: Yes (Other)
  Sender: FDA-Public Use
  Company Number: JP-ABBOTT-10P-087-0662016-00

PATIENT
  Age: 19 Year
  Sex: Female
  Weight: 45 kg

DRUGS (13)
  1. SEVOFLURANE [Suspect]
     Indication: INDUCTION OF ANAESTHESIA
     Dosage: 1%
     Route: 055
     Dates: start: 20050609, end: 20050609
  2. SEVOFLURANE [Suspect]
     Indication: MAINTENANCE OF ANAESTHESIA
     Dosage: 4%
     Route: 055
     Dates: start: 20050609, end: 20050609
  3. PROPOFOL MARUISHI [Suspect]
     Indication: PRODUCT USED FOR UNKNOWN INDICATION
     Dosage: 1%
  4. FENTANYL CITRATE [Suspect]
     Indication: INDUCTION AND MAINTENANCE OF ANAESTHESIA
     Route: 042
     Dates: start: 20050609, end: 20050609
  5. ATROPINE SULFATE [Suspect]
     Indication: PRODUCT USED FOR UNKNOWN INDICATION
  6. DORMICUM [Suspect]
     Indication: PRODUCT USED FOR UNKNOWN INDICATION
  7. NITROUS OXIDE [Suspect]
     Indication: INDUCTION OF ANAESTHESIA
     Dosage: 150 L/MIN
     Dates: start: 20050609, end: 20050609
  8. NITROUS OXIDE [Suspect]
     Indication: MAINTENANCE OF ANAESTHESIA
     Dosage: 540 L/MIN
     Dates: start: 20050609, end: 20050609
  9. DROPERIDOL [Suspect]
     Indication: PRODUCT USED FOR UNKNOWN INDICATION
     Route: 042
  10. THIOPENTAL SODIUM [Concomitant]
     Indication: INDUCTION OF ANAESTHESIA
     Route: 042
     Dates: start: 20050609, end: 20050609
  11. CARBOCISTEINE [Concomitant]
     Indication: PRIMARY CILIARY DYSKINESIA
     Dosage: 1500 MG IN 3 DOSES
     Route: 048
  12. VECURONIUM BROMIDE [Concomitant]
     Indication: PRODUCT USED FOR UNKNOWN INDICATION
  13. OXYGEN [Concomitant]
     Indication: MAINTENANCE OF ANAESTHESIA
     Dosage: 2 L PER MINUTE

REACTIONS (3)
  - HYPOXIA [None]
  - INCREASED BRONCHIAL SECRETION [None]
  - NAUSEA [None]
